FAERS Safety Report 21629639 (Version 8)
Quarter: 2024Q3

REPORT INFORMATION
  Report Type: Spontaneous
  Country: IN (occurrence: IN)
  Receive Date: 20221122
  Receipt Date: 20240724
  Transmission Date: 20241016
  Serious: Yes (Other)
  Sender: PFIZER
  Company Number: IN-PFIZER INC-202101112221

PATIENT
  Age: 70 Year
  Sex: Female
  Weight: 72.8 kg

DRUGS (7)
  1. PALBOCICLIB [Suspect]
     Active Substance: PALBOCICLIB
     Indication: Progesterone receptor assay negative
     Dosage: 1X/DAY (OD) 3 WEEKS ON, 1 WEEK OFF
     Route: 048
     Dates: start: 20210601
  2. PALBOCICLIB [Suspect]
     Active Substance: PALBOCICLIB
     Indication: Breast cancer female
  3. FEMARA [Concomitant]
     Active Substance: LETROZOLE
     Dosage: 2.5 MG, DAILY (3 MONTHS)
  4. ZOMETA [Concomitant]
     Active Substance: ZOLEDRONIC ACID
     Dosage: 3 MONTHS ONCE
     Dates: start: 2021
  5. CALCIUM\CHOLECALCIFEROL [Concomitant]
     Active Substance: CALCIUM\CHOLECALCIFEROL
     Dosage: 500 MG, 2X/DAY
  6. MINERAL OIL [Concomitant]
     Active Substance: MINERAL OIL
     Dosage: FOR LOCAL APPLICATION
  7. ARIMIDEX [Concomitant]
     Active Substance: ANASTROZOLE
     Dosage: 1 MG, 1X/DAY

REACTIONS (13)
  - Cerebrospinal fluid leakage [Unknown]
  - Nasal injury [Unknown]
  - White blood cell count decreased [Unknown]
  - Fall [Unknown]
  - Body mass index increased [Unknown]
  - Dyspnoea exertional [Unknown]
  - Pruritus [Unknown]
  - Haemoglobin decreased [Unknown]
  - Respiratory rate increased [Unknown]
  - Blood pressure increased [Unknown]
  - Weight increased [Unknown]
  - Back pain [Unknown]
  - Blood creatinine increased [Unknown]

NARRATIVE: CASE EVENT DATE: 20220513
